FAERS Safety Report 19001165 (Version 4)
Quarter: 2021Q3

REPORT INFORMATION
  Report Type: Spontaneous
  Country: US (occurrence: US)
  Receive Date: 20210311
  Receipt Date: 20210810
  Transmission Date: 20211014
  Serious: No
  Sender: FDA-Public Use
  Company Number: US-LUPIN PHARMACEUTICALS INC.-2021-03077

PATIENT
  Sex: Female
  Weight: 53.52 kg

DRUGS (4)
  1. HYDROCODONE BITARTRATE AND ACETAMINOPHEN [Suspect]
     Active Substance: ACETAMINOPHEN\HYDROCODONE BITARTRATE
     Indication: PAIN
     Dosage: 04 DOSAGE FORM, QD (04 TABLET PER DAY)
     Route: 048
  2. TYLENOL [Concomitant]
     Active Substance: ACETAMINOPHEN
     Indication: HEADACHE
  3. HYDROCODONE BITARTRATE AND ACETAMINOPHEN [Suspect]
     Active Substance: ACETAMINOPHEN\HYDROCODONE BITARTRATE
     Indication: MIGRAINE
     Dosage: 06 DOSAGE FORM, QD (06?TABLET PER DAY DUE TO INEFFECTIVENESS)
     Route: 048
  4. HYDROCODONE BITARTRATE AND ACETAMINOPHEN [Suspect]
     Active Substance: ACETAMINOPHEN\HYDROCODONE BITARTRATE
     Indication: CHRONIC DISEASE

REACTIONS (7)
  - Fatigue [Unknown]
  - Illness [Unknown]
  - Drug ineffective [Unknown]
  - Headache [Unknown]
  - Swelling [Unknown]
  - Extra dose administered [Unknown]
  - Product substitution issue [Unknown]
